FAERS Safety Report 7743498-3 (Version None)
Quarter: 2011Q3

REPORT INFORMATION
  Report Type: 
  Country: None (occurrence: None)
  Receive Date: 20110912
  Receipt Date: 20110413
  Transmission Date: 20111222
  Serious: Yes (Hospitalization, Disabling)
  Sender: FDA-Public Use
  Company Number: US-ABBOTT-11P-163-0703770-00

PATIENT
  Sex: Male
  Weight: 19.976 kg

DRUGS (3)
  1. PREVACID [Concomitant]
     Indication: PRODUCT USED FOR UNKNOWN INDICATION
  2. DEPAKOTE [Suspect]
     Indication: COMPLEX PARTIAL SEIZURES
     Dates: start: 20090101, end: 20101101
  3. DEPAKOTE [Suspect]
     Indication: EPILEPSY
     Dates: start: 20101101

REACTIONS (2)
  - CONVULSION [None]
  - DRUG INEFFECTIVE [None]
